FAERS Safety Report 5576499-4 (Version None)
Quarter: 2007Q4

REPORT INFORMATION
  Report Type: 
  Country: None (occurrence: None)
  Receive Date: 20071228
  Receipt Date: 20071227
  Transmission Date: 20080405
  Serious: Yes (Death)
  Sender: FDA-Public Use
  Company Number: A0700595A

PATIENT
  Sex: Male

DRUGS (2)
  1. ADVAIR DISKUS 100/50 [Suspect]
     Indication: EMPHYSEMA
     Dosage: 1SPR TWICE PER DAY
     Route: 055
  2. NO CONCURRENT MEDICATION [Concomitant]

REACTIONS (1)
  - DEATH [None]
